FAERS Safety Report 5101625-0 (Version None)
Quarter: 2006Q3

REPORT INFORMATION
  Report Type: 
  Country: None (occurrence: None)
  Receive Date: 20060911
  Receipt Date: 20060518
  Transmission Date: 20061208
  Serious: Yes (Life-Threatening, Hospitalization)
  Sender: FDA-Public Use
  Company Number: 2006UW11640

PATIENT
  Age: 47 Year
  Sex: Male
  Weight: 103.6 kg

DRUGS (10)
  1. LISINOPRIL [Suspect]
     Indication: HYPERTENSION
     Route: 048
     Dates: start: 20060410
  2. DIVALPROEX SODIUM [Suspect]
     Indication: MIGRAINE
     Route: 048
     Dates: start: 20060330
  3. DIVALPROEX SODIUM [Suspect]
     Indication: TRANSIENT ISCHAEMIC ATTACK
     Route: 048
     Dates: start: 20060330
  4. TEMAZEPAM [Suspect]
     Indication: INSOMNIA
     Route: 048
     Dates: start: 20050808
  5. LANSOPRAZOLE [Suspect]
     Indication: PROPHYLAXIS
     Route: 048
     Dates: start: 20060410
  6. MORPHINE SULFATE [Concomitant]
     Route: 048
     Dates: start: 20020101
  7. CLONIDINE HCL [Concomitant]
     Route: 048
     Dates: start: 20020101
  8. HYDROMORPHONE HYDROCHLORIDE [Concomitant]
     Dates: start: 20020101
  9. NORTRIPTYLINE HCL [Concomitant]
     Indication: MIGRAINE
     Route: 048
     Dates: start: 20050808
  10. ORAVESCENT FENTANYL CITRATE [Concomitant]
     Indication: BREAKTHROUGH PAIN
     Route: 002
     Dates: start: 20050523, end: 20060414

REACTIONS (5)
  - HYPOTENSION [None]
  - LOSS OF CONSCIOUSNESS [None]
  - MULTIPLE DRUG OVERDOSE INTENTIONAL [None]
  - RESPIRATORY DISTRESS [None]
  - SUICIDE ATTEMPT [None]
